FAERS Safety Report 15366860 (Version 1)
Quarter: 2018Q3

REPORT INFORMATION
  Report Type: Spontaneous
  Country: US (occurrence: US)
  Receive Date: 20180902
  Receipt Date: 20180902
  Transmission Date: 20181010
  Serious: Yes (Other)
  Sender: FDA-Public Use
  Company Number: None

PATIENT
  Age: 68 Year
  Sex: Male
  Weight: 118.35 kg

DRUGS (45)
  1. DECADRON IV [Concomitant]
  2. DOCUSATE SODIUM. [Concomitant]
     Active Substance: DOCUSATE SODIUM
  3. ATENOLOL. [Concomitant]
     Active Substance: ATENOLOL
  4. L. ACIDOPH/PECTIN [Concomitant]
  5. PEG 3350 [Concomitant]
     Active Substance: POLYETHYLENE GLYCOL 3350
  6. COENZYME Q10 [Concomitant]
     Active Substance: UBIDECARENONE
  7. VITAMIN C [Concomitant]
     Active Substance: ASCORBIC ACID
  8. BUPROPION XL [Concomitant]
     Active Substance: BUPROPION
  9. SPIRIVA [Concomitant]
     Active Substance: TIOTROPIUM BROMIDE MONOHYDRATE
  10. NEURONTIN [Concomitant]
     Active Substance: GABAPENTIN
  11. CARBAMAZEPINE XR [Concomitant]
  12. MELATONIN [Concomitant]
     Active Substance: MELATONIN
  13. PERCOCET [Concomitant]
     Active Substance: ACETAMINOPHEN\OXYCODONE HYDROCHLORIDE
  14. VOLTAREN [Concomitant]
     Active Substance: DICLOFENAC SODIUM
  15. VITAMIN D3 [Concomitant]
     Active Substance: CHOLECALCIFEROL
  16. DIVALPROEX [Concomitant]
     Active Substance: DIVALPROEX SODIUM
  17. GLIMEPIRIDE. [Concomitant]
     Active Substance: GLIMEPIRIDE
  18. LASIX [Concomitant]
     Active Substance: FUROSEMIDE
  19. FLONASE [Concomitant]
     Active Substance: FLUTICASONE PROPIONATE
  20. MAGNESIUM [Concomitant]
     Active Substance: MAGNESIUM
  21. PRIMIDONE. [Concomitant]
     Active Substance: PRIMIDONE
  22. BROVANA [Concomitant]
     Active Substance: ARFORMOTEROL TARTRATE
  23. DIOVAN [Concomitant]
     Active Substance: VALSARTAN
  24. CITRUS [Concomitant]
  25. ARTIFICIAL SALIVA MOUTH KOTE [Concomitant]
  26. REFRESH CELLUVISC [Concomitant]
     Active Substance: CARBOXYMETHYLCELLULOSE SODIUM
  27. METROGEL [Concomitant]
     Active Substance: METRONIDAZOLE
  28. BISACODYL. [Concomitant]
     Active Substance: BISACODYL
  29. BENADRYL IV [Concomitant]
  30. ASPIRIN. [Concomitant]
     Active Substance: ASPIRIN
  31. SODIUM FLUORIDE. [Concomitant]
     Active Substance: SODIUM FLUORIDE
  32. KETOCONAZOLE. [Concomitant]
     Active Substance: KETOCONAZOLE
  33. ALBUTEROL INH [Concomitant]
     Active Substance: ALBUTEROL
  34. PROTOPIC [Concomitant]
     Active Substance: TACROLIMUS
  35. JARDIANCE [Suspect]
     Active Substance: EMPAGLIFLOZIN
     Indication: TYPE 2 DIABETES MELLITUS
     Dosage: ?          QUANTITY:30 TABLET(S);?
     Route: 048
     Dates: end: 20180831
  36. ALLOPURINOL. [Concomitant]
     Active Substance: ALLOPURINOL
  37. SINGULAIR [Concomitant]
     Active Substance: MONTELUKAST SODIUM
  38. POTASSIUM CHLORIDE 20MEQ CHL (MICRO) [Concomitant]
  39. ALLEGRA [Concomitant]
     Active Substance: FEXOFENADINE HYDROCHLORIDE
  40. LIDOCAINE. [Concomitant]
     Active Substance: LIDOCAINE
  41. ADDERALL XR [Concomitant]
     Active Substance: AMPHETAMINE ASPARTATE\AMPHETAMINE SULFATE\DEXTROAMPHETAMINE SACCHARATE\DEXTROAMPHETAMINE SULFATE
  42. NITRO LINGUAL SPRAY [Concomitant]
  43. VALIUM [Concomitant]
     Active Substance: DIAZEPAM
  44. CALCIUM [Concomitant]
     Active Substance: CALCIUM
  45. MULTIVITAMIN PURITAN^S PRIDE MEGA VITA MIN FOR SENIORS [Concomitant]

REACTIONS (7)
  - Testicular pain [None]
  - Stress urinary incontinence [None]
  - Genital discomfort [None]
  - Glucose urine present [None]
  - Anal pruritus [None]
  - Mobility decreased [None]
  - Cough [None]

NARRATIVE: CASE EVENT DATE: 20180831
